FAERS Safety Report 7463829-1 (Version None)
Quarter: 2011Q2

REPORT INFORMATION
  Report Type: 
  Country: None (occurrence: None)
  Receive Date: 20110506
  Receipt Date: 20110422
  Transmission Date: 20111010
  Serious: Yes (Life-Threatening, Hospitalization, Other)
  Sender: FDA-Public Use
  Company Number: JP-JNJFOC-20100701920

PATIENT
  Age: 34 Year
  Sex: Female
  Weight: 42 kg

DRUGS (4)
  1. MESALAZINE [Concomitant]
     Indication: CROHN'S DISEASE
  2. REMICADE [Suspect]
     Dosage: 3RD DOSE; DAY 28
     Route: 042
  3. REMICADE [Suspect]
     Indication: CROHN'S DISEASE
     Dosage: 5 MG/KG; FIRST DOSE
     Route: 042
  4. REMICADE [Suspect]
     Dosage: SECOND DOSE; DAY 14
     Route: 042

REACTIONS (2)
  - ANAL CANCER [None]
  - RECTAL CANCER STAGE III [None]
